FAERS Safety Report 18531819 (Version 1)
Quarter: 2020Q4

REPORT INFORMATION
  Report Type: Spontaneous
  Country: CA (occurrence: CA)
  Receive Date: 20201123
  Receipt Date: 20201123
  Transmission Date: 20210114
  Serious: Yes (Death)
  Sender: FDA-Public Use
  Company Number: CA-USWM, LLC-UWM202011-000051

PATIENT
  Age: 17 Week
  Sex: Female

DRUGS (3)
  1. NADOLOL. [Suspect]
     Active Substance: NADOLOL
     Indication: INFANTILE HAEMANGIOMA
  2. NADOLOL. [Suspect]
     Active Substance: NADOLOL
  3. NADOLOL. [Suspect]
     Active Substance: NADOLOL

REACTIONS (2)
  - Product use in unapproved indication [Unknown]
  - Toxicity to various agents [Fatal]
